FAERS Safety Report 5411017-2 (Version None)
Quarter: 2007Q3

REPORT INFORMATION
  Report Type: 
  Country: None (occurrence: None)
  Receive Date: 20070810
  Receipt Date: 20070803
  Transmission Date: 20080115
  Serious: Yes (Death, Hospitalization, Other)
  Sender: FDA-Public Use
  Company Number: US-AVENTIS-200715619US

PATIENT
  Age: 48 Year
  Sex: Female

DRUGS (3)
  1. TAXOTERE [Suspect]
     Dosage: DOSE: UNK
  2. XELODA [Suspect]
     Route: 048
     Dates: start: 20070201, end: 20070301
  3. XELODA [Suspect]
     Route: 048
     Dates: start: 20070301

REACTIONS (9)
  - ABDOMINAL SYMPTOM [None]
  - CARDIAC FAILURE CONGESTIVE [None]
  - DYSPNOEA [None]
  - ELECTROCARDIOGRAM ABNORMAL [None]
  - HEPATIC ENZYME INCREASED [None]
  - METASTASES TO HEART [None]
  - METASTASES TO LUNG [None]
  - PLEURAL EFFUSION [None]
  - URINARY TRACT INFECTION [None]
